FAERS Safety Report 22638512 (Version 3)
Quarter: 2024Q2

REPORT INFORMATION
  Report Type: Report from Study
  Country: JP (occurrence: JP)
  Receive Date: 20230626
  Receipt Date: 20240620
  Transmission Date: 20240715
  Serious: Yes (Hospitalization, Other)
  Sender: FDA-Public Use
  Company Number: JP-ABBVIE-5301826

PATIENT
  Age: 48 Year
  Sex: Female
  Weight: 65 kg

DRUGS (21)
  1. RINVOQ [Suspect]
     Active Substance: UPADACITINIB
     Indication: Rheumatoid arthritis
     Route: 048
     Dates: start: 20210428
  2. ITRACONAZOLE [Concomitant]
     Active Substance: ITRACONAZOLE
     Indication: Product used for unknown indication
     Dosage: 20 ML
     Route: 048
  3. SCOPOLAMINE [Concomitant]
     Active Substance: SCOPOLAMINE
     Indication: Product used for unknown indication
     Dosage: 10 MILLIGRAM
     Route: 048
  4. Carpronium chloride hydrate [Concomitant]
     Indication: Product used for unknown indication
     Route: 048
  5. SULFAMETHOXAZOLE AND TRIMETHOPRIM [Concomitant]
     Active Substance: SULFAMETHOXAZOLE\TRIMETHOPRIM
     Indication: Product used for unknown indication
     Dosage: 1 TABLET
     Route: 048
  6. ESOMEPRAZOLE MAGNESIUM [Concomitant]
     Active Substance: ESOMEPRAZOLE MAGNESIUM
     Indication: Product used for unknown indication
     Dosage: 20 MILLIGRAM
     Route: 048
  7. PREDONINE [Suspect]
     Active Substance: PREDNISOLONE
     Indication: Rheumatoid arthritis
     Dosage: 12.5 MILLIGRAM
     Route: 065
     Dates: start: 20210624, end: 20210906
  8. PREDONINE [Suspect]
     Active Substance: PREDNISOLONE
     Indication: Rheumatoid arthritis
     Dosage: 17.5 MILLIGRAM
     Route: 065
     Dates: start: 20210513, end: 20210519
  9. PREDONINE [Suspect]
     Active Substance: PREDNISOLONE
     Indication: Rheumatoid arthritis
     Dosage: 20 MILLIGRAM
     Route: 065
     Dates: end: 20210512
  10. PREDONINE [Suspect]
     Active Substance: PREDNISOLONE
     Indication: Rheumatoid arthritis
     Dosage: 15 MILLIGRAM
     Route: 065
     Dates: start: 20210520, end: 20210623
  11. PREDONINE [Suspect]
     Active Substance: PREDNISOLONE
     Indication: Rheumatoid arthritis
     Dosage: 10 MILLIGRAM
     Route: 065
     Dates: start: 20210907
  12. PANCRELIPASE DCI [Concomitant]
     Indication: Product used for unknown indication
     Dosage: 1800 MILLIGRAM
     Route: 048
  13. GLUCOSE;MAGNESIUM;POTASSIUM ASPARTATE [Concomitant]
     Indication: Product used for unknown indication
     Dosage: 7200 MILLIGRAM
     Route: 048
  14. POTASSIUM CHLORIDE [Concomitant]
     Active Substance: POTASSIUM CHLORIDE
     Indication: Product used for unknown indication
     Dosage: 7200 MILLIGRAM
     Route: 048
  15. LEVOTHYROXINE SODIUM [Concomitant]
     Active Substance: LEVOTHYROXINE SODIUM
     Indication: Product used for unknown indication
     Dosage: 25 MICROGRAM
     Route: 048
  16. TRAMADOL HYDROCHLORIDE [Concomitant]
     Active Substance: TRAMADOL HYDROCHLORIDE
     Indication: Rheumatoid arthritis
     Dosage: 100 MILLIGRAM
  17. DARBEPOETIN ALFA [Concomitant]
     Active Substance: DARBEPOETIN ALFA
     Indication: Product used for unknown indication
     Route: 065
  18. CELECOXIB [Concomitant]
     Active Substance: CELECOXIB
     Indication: Rheumatoid arthritis
     Dosage: 400 MILLIGRAM
     Route: 065
  19. ALFACALCIDOL [Concomitant]
     Active Substance: ALFACALCIDOL
     Indication: Product used for unknown indication
     Dosage: 0.5 MICROGRAM
     Route: 048
  20. CALCIUM ASPARTATE [Concomitant]
     Active Substance: CALCIUM ASPARTATE
     Indication: Product used for unknown indication
     Dosage: 800 MILLIGRAM
     Route: 048
  21. NALOXONE HYDROCHLORIDE [Concomitant]
     Active Substance: NALOXONE HYDROCHLORIDE
     Indication: Rheumatoid arthritis
     Dosage: 100 MILLIGRAM
     Route: 065

REACTIONS (6)
  - Osteonecrosis [Recovered/Resolved]
  - Avulsion fracture [Recovered/Resolved]
  - Femoral neck fracture [Recovered/Resolved]
  - Myopathy [Recovered/Resolved]
  - Interstitial lung disease [Recovered/Resolved]
  - Hypokalaemia [Recovered/Resolved]

NARRATIVE: CASE EVENT DATE: 20220520
